FAERS Safety Report 11490080 (Version 2)
Quarter: 2015Q3

REPORT INFORMATION
  Report Type: Spontaneous
  Country: IT (occurrence: IT)
  Receive Date: 20150910
  Receipt Date: 20150910
  Transmission Date: 20151125
  Serious: Yes (Life-Threatening)
  Sender: FDA-Public Use
  Company Number: IT-WATSON-2015-18764

PATIENT
  Age: 27 Year
  Sex: Female

DRUGS (7)
  1. QUETIAPINE (UNKNOWN) [Suspect]
     Active Substance: QUETIAPINE
     Indication: DRUG ABUSE
     Dosage: 24000 MG, TOTAL
     Route: 048
     Dates: start: 20140909, end: 20140909
  2. CARBOLITHIUM [Suspect]
     Active Substance: LITHIUM CARBONATE
     Indication: DRUG ABUSE
     Dosage: 13 DF, TOTAL
     Route: 048
     Dates: start: 20140909, end: 20140909
  3. CLONAZEPAM. [Suspect]
     Active Substance: CLONAZEPAM
     Indication: DRUG ABUSE
     Dosage: 26 MG, TOTAL
     Route: 048
     Dates: start: 20140909, end: 20140909
  4. TRIFLUOPERAZINE HYDROCHLORIDE. [Suspect]
     Active Substance: TRIFLUOPERAZINE HYDROCHLORIDE
     Indication: DRUG ABUSE
     Dosage: 60 MG, TOTAL
     Route: 048
     Dates: start: 20140909, end: 20140909
  5. STILNOX [Suspect]
     Active Substance: ZOLPIDEM TARTRATE
     Indication: DRUG ABUSE
     Dosage: 30 DF, TOTAL
     Route: 048
     Dates: start: 20140909, end: 20140909
  6. TIZANIDINE HYDROCHLORIDE. [Suspect]
     Active Substance: TIZANIDINE HYDROCHLORIDE
     Indication: DRUG ABUSE
     Dosage: 80 MG, TOTAL
     Route: 048
     Dates: start: 20140909, end: 20140909
  7. LORAZEPAM (UNKNOWN) [Suspect]
     Active Substance: LORAZEPAM
     Indication: DRUG ABUSE
     Dosage: 10 ML, TOTAL
     Route: 048
     Dates: start: 20140909, end: 20140909

REACTIONS (2)
  - Drug abuse [Unknown]
  - Loss of consciousness [Unknown]

NARRATIVE: CASE EVENT DATE: 20140909
